FAERS Safety Report 6007262-8 (Version None)
Quarter: 2008Q4

REPORT INFORMATION
  Report Type: 
  Country: None (occurrence: None)
  Receive Date: 20081217
  Receipt Date: 20080204
  Transmission Date: 20090506
  Serious: No
  Sender: FDA-Public Use
  Company Number: US-ASTRAZENECA-2008UW02401

PATIENT
  Sex: Male

DRUGS (2)
  1. CRESTOR [Suspect]
     Route: 048
  2. NIACIN [Concomitant]

REACTIONS (4)
  - FATIGUE [None]
  - NEPHROLITHIASIS [None]
  - PAIN [None]
  - URINARY TRACT INFECTION [None]
